FAERS Safety Report 5816880-9 (Version None)
Quarter: 2008Q3

REPORT INFORMATION
  Report Type: 
  Country: None (occurrence: None)
  Receive Date: 20080721
  Receipt Date: 20080711
  Transmission Date: 20090109
  Serious: Yes (Other)
  Sender: FDA-Public Use
  Company Number: US-MERCK-0807USA02947

PATIENT
  Age: 29 Year
  Sex: Female

DRUGS (6)
  1. SINGULAIR [Suspect]
     Route: 048
     Dates: start: 19980324, end: 19980601
  2. FLONASE [Concomitant]
     Route: 065
  3. PREDNISONE [Concomitant]
     Route: 065
  4. SEREVENT [Concomitant]
     Route: 065
  5. FLOVENT [Concomitant]
     Route: 065
  6. ALBUTEROL [Concomitant]
     Route: 065

REACTIONS (2)
  - ABORTION [None]
  - DRUG EXPOSURE DURING PREGNANCY [None]
